FAERS Safety Report 9783773 (Version 3)
Quarter: 2014Q1

REPORT INFORMATION
  Report Type: Spontaneous
  Country: US (occurrence: US)
  Receive Date: 20131226
  Receipt Date: 20140214
  Transmission Date: 20141002
  Serious: No
  Sender: FDA-Public Use
  Company Number: US-PFIZER INC-2013366471

PATIENT
  Age: 79 Year
  Sex: Female
  Weight: 77.1 kg

DRUGS (9)
  1. LYRICA [Suspect]
     Indication: NEUROPATHY PERIPHERAL
     Dosage: 75 MG, 2X/DAY
     Route: 048
     Dates: start: 20131021
  2. LYRICA [Suspect]
     Indication: PAIN
     Dosage: 150 MG, 2X/DAY
     Route: 048
     Dates: start: 20131113, end: 20131219
  3. LYRICA [Suspect]
     Dosage: 75 MG, DAILY (75MG, PO QD)
     Route: 048
     Dates: start: 20131219, end: 20131219
  4. LIPITOR [Concomitant]
     Dosage: 40 MG, UNK
  5. PANTOPRAZOLE [Concomitant]
     Dosage: 40 MG, UNK
  6. ISOSORBIDE [Concomitant]
     Dosage: 30 MG, UNK
  7. SYNTHROID [Concomitant]
     Dosage: 50 UG, UNK
  8. ASPIRIN [Concomitant]
     Dosage: 81 MG, UNK
  9. DONEPEZIL [Concomitant]
     Dosage: 10 MG, UNK

REACTIONS (3)
  - Drug ineffective for unapproved indication [Unknown]
  - Constipation [Recovered/Resolved]
  - Off label use [Unknown]
